FAERS Safety Report 8398820-4 (Version None)
Quarter: 2012Q2

REPORT INFORMATION
  Report Type: 
  Country: None (occurrence: None)
  Receive Date: 20120531
  Receipt Date: 20120518
  Transmission Date: 20120825
  Serious: No
  Sender: FDA-Public Use
  Company Number: US-ASTRAZENECA-2012SE32367

PATIENT
  Age: 34 Year
  Sex: Female
  Weight: 47.6 kg

DRUGS (4)
  1. NEXIUM [Suspect]
     Indication: GASTROOESOPHAGEAL REFLUX DISEASE
     Route: 048
     Dates: start: 20080101
  2. DEXILANT [Concomitant]
  3. NEXIUM [Suspect]
     Dosage: ONCE A DAY
     Route: 048
  4. NEXIUM [Suspect]
     Route: 048
     Dates: start: 20120101

REACTIONS (3)
  - FOOD ALLERGY [None]
  - DRUG PRESCRIBING ERROR [None]
  - DYSPEPSIA [None]
